FAERS Safety Report 17786564 (Version 2)
Quarter: 2021Q4

REPORT INFORMATION
  Report Type: Other
  Country: None (occurrence: US)
  Receive Date: 20200514
  Receipt Date: 20211103
  Transmission Date: 20220303
  Serious: Yes (Other)
  Sender: FDA-Public Use
  Company Number: US-RARE DISEASE THERAPEUTICS, INC.-2083778

PATIENT
  Age: 7 Year
  Sex: Male
  Weight: 30 kg

DRUGS (1)
  1. ANAVIP [Suspect]
     Active Substance: PIT VIPER (CROTALINAE) IMMUNE GLOBULIN ANTIVENIN (EQUINE)
     Indication: Venomous bite
     Route: 042
     Dates: start: 20200411, end: 20200414

REACTIONS (1)
  - Serum sickness [Recovering/Resolving]

NARRATIVE: CASE EVENT DATE: 20200417
